FAERS Safety Report 25704910 (Version 3)
Quarter: 2025Q3

REPORT INFORMATION
  Report Type: Report from Study
  Country: US (occurrence: US)
  Receive Date: 20250820
  Receipt Date: 20250919
  Transmission Date: 20251021
  Serious: Yes (Hospitalization)
  Sender: TAKEDA
  Company Number: US-TAKEDA-2025TUS072825

PATIENT
  Sex: Female
  Weight: 80.272 kg

DRUGS (12)
  1. HUMAN IMMUNOGLOBULIN G [Suspect]
     Active Substance: HUMAN IMMUNOGLOBULIN G
     Indication: Immunodeficiency common variable
     Dosage: 40 GRAM, Q4WEEKS
  2. ELIQUIS [Concomitant]
     Active Substance: APIXABAN
  3. PREDNISONE [Concomitant]
     Active Substance: PREDNISONE
  4. TACROLIMUS [Concomitant]
     Active Substance: TACROLIMUS
  5. ALBUTEROL SULFATE [Concomitant]
     Active Substance: ALBUTEROL SULFATE
  6. PANTOPRAZOLE SODIUM [Concomitant]
     Active Substance: PANTOPRAZOLE SODIUM
  7. MAGNESIUM OXIDE [Concomitant]
     Active Substance: MAGNESIUM OXIDE
  8. ZYRTEC [Concomitant]
     Active Substance: CETIRIZINE HYDROCHLORIDE
  9. SULFAMETHOXAZOLE AND TRIMETHOPRIM [Concomitant]
     Active Substance: SULFAMETHOXAZOLE\TRIMETHOPRIM
  10. GABAPENTIN [Concomitant]
     Active Substance: GABAPENTIN
  11. SENOKOT [Concomitant]
     Active Substance: SENNOSIDES
  12. MUCINEX [Concomitant]
     Active Substance: GUAIFENESIN

REACTIONS (4)
  - Carbon dioxide increased [Unknown]
  - Oestradiol increased [Unknown]
  - Cough [Unknown]
  - Dyspnoea [Unknown]
